FAERS Safety Report 22228691 (Version 1)
Quarter: 2023Q2

REPORT INFORMATION
  Report Type: Spontaneous
  Country: US (occurrence: None)
  Receive Date: 20230418
  Receipt Date: 20230418
  Transmission Date: 20230721
  Serious: Yes (Life-Threatening)
  Sender: FDA-Public Use
  Company Number: None

PATIENT
  Age: 69 Year
  Sex: Female
  Weight: 67.95 kg

DRUGS (2)
  1. SUPREP BOWEL PREP [Suspect]
     Active Substance: MAGNESIUM SULFATE\POTASSIUM SULFATE\SODIUM SULFATE
     Indication: Bowel preparation
     Dosage: OTHER QUANTITY : 6 OUNCE(S);?FREQUENCY : TWICE A DAY;?
     Route: 048
  2. SUPREP BOWEL PREP [Suspect]
     Active Substance: MAGNESIUM SULFATE\POTASSIUM SULFATE\SODIUM SULFATE
     Indication: Colonoscopy

REACTIONS (2)
  - Blood pressure increased [None]
  - Malaise [None]

NARRATIVE: CASE EVENT DATE: 20230417
